FAERS Safety Report 25640626 (Version 1)
Quarter: 2025Q3

REPORT INFORMATION
  Report Type: Report from Study
  Country: US (occurrence: US)
  Receive Date: 20250804
  Receipt Date: 20250804
  Transmission Date: 20251021
  Serious: Yes (Hospitalization)
  Sender: ASCENDIS PHARMA
  Company Number: US-ASCENDIS PHARMA-2025US010650

PATIENT

DRUGS (1)
  1. PALOPEGTERIPARATIDE [Suspect]
     Active Substance: PALOPEGTERIPARATIDE
     Indication: Product used for unknown indication
     Route: 058
     Dates: end: 20250720

REACTIONS (6)
  - Hallucination [Unknown]
  - Confusional state [Unknown]
  - Blood calcium increased [Unknown]
  - Pruritus [Unknown]
  - Constipation [Not Recovered/Not Resolved]
  - Oropharyngeal discomfort [Not Recovered/Not Resolved]
